FAERS Safety Report 14441501 (Version 1)
Quarter: 2018Q1

REPORT INFORMATION
  Report Type: Spontaneous
  Country: GB (occurrence: ES)
  Receive Date: 20180125
  Receipt Date: 20180125
  Transmission Date: 20180509
  Serious: Yes (Hospitalization)
  Sender: FDA-Public Use
  Company Number: GB-SA-2018SA016272

PATIENT
  Age: 78 Year
  Sex: Male

DRUGS (3)
  1. CEFDITOREN [Suspect]
     Active Substance: CEFDITOREN
     Indication: ESCHERICHIA INFECTION
     Route: 048
  2. LEFLUNOMIDE. [Suspect]
     Active Substance: LEFLUNOMIDE
     Indication: RHEUMATOID ARTHRITIS
     Route: 065
  3. CEFTAZIDIME. [Suspect]
     Active Substance: CEFTAZIDIME
     Route: 042

REACTIONS (2)
  - Bacterial infection [Recovering/Resolving]
  - Chronic obstructive pulmonary disease [Recovering/Resolving]
